FAERS Safety Report 20671129 (Version 1)
Quarter: 2022Q2

REPORT INFORMATION
  Report Type: Spontaneous
  Country: US (occurrence: US)
  Receive Date: 20220404
  Receipt Date: 20220404
  Transmission Date: 20220721
  Serious: No
  Sender: FDA-Public Use
  Company Number: US-SA-SAC20220331001463

PATIENT
  Age: 56 Year
  Sex: Female

DRUGS (21)
  1. AUBAGIO [Suspect]
     Active Substance: TERIFLUNOMIDE
     Indication: Relapsing-remitting multiple sclerosis
     Dosage: 1 DF, QD
     Route: 048
     Dates: start: 20150407
  2. FERROUS SULFATE [Concomitant]
     Active Substance: FERROUS SULFATE
  3. CALCIUM CITRATE\CHOLECALCIFEROL [Concomitant]
     Active Substance: CALCIUM CITRATE\CHOLECALCIFEROL
     Dosage: CALCIUM + D3 TAB 600-200M
  4. CALCIUM CITRATE\CHOLECALCIFEROL [Concomitant]
     Active Substance: CALCIUM CITRATE\CHOLECALCIFEROL
     Dosage: CALCIUM+D3 TAB 600-800MG
  5. CYMBALTA [Concomitant]
     Active Substance: DULOXETINE HYDROCHLORIDE
  6. LOSARTAN POTASSIUM [Concomitant]
     Active Substance: LOSARTAN POTASSIUM
  7. PERCOCET [Concomitant]
     Active Substance: ACETAMINOPHEN\OXYCODONE HYDROCHLORIDE
  8. VALIUM [Concomitant]
     Active Substance: DIAZEPAM
  9. ABILIFY [Concomitant]
     Active Substance: ARIPIPRAZOLE
  10. ADDERALL [Concomitant]
     Active Substance: AMPHETAMINE ASPARTATE\AMPHETAMINE SULFATE\DEXTROAMPHETAMINE SACCHARATE\DEXTROAMPHETAMINE SULFATE
  11. ACYCLOVIR [Concomitant]
     Active Substance: ACYCLOVIR
  12. FLUTICASONE PROPIONATE [Concomitant]
     Active Substance: FLUTICASONE PROPIONATE
  13. BUPROPION HYDROCHLORIDE XL [Concomitant]
     Active Substance: BUPROPION HYDROCHLORIDE
  14. LORAZEPAM [Concomitant]
     Active Substance: LORAZEPAM
  15. PREDNISONE [Concomitant]
     Active Substance: PREDNISONE
  16. VENTOLIN HFA [Concomitant]
     Active Substance: ALBUTEROL SULFATE
  17. GABAPENTIN [Concomitant]
     Active Substance: GABAPENTIN
  18. METHOCARBAMOL [Concomitant]
     Active Substance: METHOCARBAMOL
  19. VITAMINS NOS [Concomitant]
     Active Substance: VITAMINS
  20. BLACK COHOSH [Concomitant]
     Active Substance: BLACK COHOSH
  21. CALCIUM\CHOLECALCIFEROL [Concomitant]
     Active Substance: CALCIUM\CHOLECALCIFEROL

REACTIONS (2)
  - Alopecia [Not Recovered/Not Resolved]
  - Hypertension [Not Recovered/Not Resolved]
